FAERS Safety Report 6807153-6 (Version None)
Quarter: 2010Q2

REPORT INFORMATION
  Report Type: 
  Country: None (occurrence: None)
  Receive Date: 20100629
  Receipt Date: 20080728
  Transmission Date: 20101027
  Serious: No
  Sender: FDA-Public Use
  Company Number: US-PFIZER INC-2008049146

PATIENT
  Sex: Female
  Weight: 79.38 kg

DRUGS (14)
  1. TIKOSYN [Suspect]
     Indication: ATRIAL FIBRILLATION
     Route: 048
     Dates: start: 20080604
  2. GABAPENTIN [Concomitant]
  3. FUROSEMIDE [Concomitant]
  4. WARFARIN SODIUM [Concomitant]
  5. DILTIAZEM [Concomitant]
  6. VYTORIN [Concomitant]
  7. ACETYLSALICYLIC ACID [Concomitant]
  8. LISINOPRIL [Concomitant]
  9. TYLENOL [Concomitant]
  10. MIRTAZAPINE [Concomitant]
  11. HYDROCHLOROTHIAZIDE [Concomitant]
  12. TOPROL-XL [Concomitant]
  13. SOTALOL [Concomitant]
  14. MACRODANTIN [Concomitant]

REACTIONS (2)
  - ABDOMINAL PAIN UPPER [None]
  - DIARRHOEA [None]
